FAERS Safety Report 5775363-5 (Version None)
Quarter: 2008Q2

REPORT INFORMATION
  Report Type: 
  Country: None (occurrence: None)
  Receive Date: 20080617
  Receipt Date: 20080611
  Transmission Date: 20081010
  Serious: Yes (Death)
  Sender: FDA-Public Use
  Company Number: JP-MERCK-0805USA02693

PATIENT
  Age: 30 Year
  Sex: Male

DRUGS (2)
  1. PEPCID RPD [Suspect]
     Route: 048
     Dates: start: 20020301, end: 20020401
  2. [THERAPY UNSPECIFIED] [Suspect]
     Route: 065

REACTIONS (2)
  - PANCYTOPENIA [None]
  - SEPSIS [None]
